FAERS Safety Report 21575463 (Version 1)
Quarter: 2022Q4

REPORT INFORMATION
  Report Type: Spontaneous
  Country: CN (occurrence: None)
  Receive Date: 20221110
  Receipt Date: 20221110
  Transmission Date: 20230113
  Serious: Yes (Other)
  Sender: FDA-Public Use
  Company Number: CN-ROCHE-3214943

PATIENT
  Age: 69 Year
  Sex: Male

DRUGS (4)
  1. TECENTRIQ [Suspect]
     Active Substance: ATEZOLIZUMAB
     Indication: Hepatic cancer
     Route: 065
     Dates: start: 20210809, end: 20220218
  2. AVASTIN [Suspect]
     Active Substance: BEVACIZUMAB
     Indication: Hepatic cancer
     Dosage: 1050 MG
     Route: 065
     Dates: start: 20210809, end: 20220218
  3. TENOFOVIR [Concomitant]
     Active Substance: TENOFOVIR
     Indication: Hepatic cancer
     Route: 048
     Dates: start: 2021
  4. EPIRUBICIN [Concomitant]
     Active Substance: EPIRUBICIN
     Indication: Hepatic cancer
     Dosage: DEB-TACE
     Dates: start: 20210723

REACTIONS (2)
  - Lung neoplasm [Recovering/Resolving]
  - Immune-mediated lung disease [Recovering/Resolving]

NARRATIVE: CASE EVENT DATE: 20220301
